FAERS Safety Report 16460366 (Version 1)
Quarter: 2019Q2

REPORT INFORMATION
  Report Type: Spontaneous
  Country: IL (occurrence: IL)
  Receive Date: 20190620
  Receipt Date: 20190620
  Transmission Date: 20190711
  Serious: Yes (Hospitalization)
  Sender: FDA-Public Use
  Company Number: IL-TEVA-2019-IL-1064923

PATIENT
  Age: 41 Year
  Sex: Male

DRUGS (5)
  1. CYTARABINE. [Suspect]
     Active Substance: CYTARABINE
     Indication: ACUTE LYMPHOCYTIC LEUKAEMIA
     Dosage: AFTER DAY14, THE MAN RECEIVED HIGH-DOSE CYTARABINE COMBINED WITH MITOXANTRONE.
     Route: 065
  2. IDARUBICIN [Suspect]
     Active Substance: IDARUBICIN
     Indication: ACUTE LYMPHOCYTIC LEUKAEMIA
     Dosage: THE MAN RECEIVED A 3 + 7 PROTOCOL OF IDARUBICIN AND CYTARABINE
     Route: 065
  3. MITOXANTRONE [Suspect]
     Active Substance: MITOXANTRONE HYDROCHLORIDE
     Indication: ACUTE LYMPHOCYTIC LEUKAEMIA
     Dosage: AFTER DAY14, HE RECEIVED HIGH-DOSE CYTARABINE COMBINED WITH MITOXANTRONE
     Route: 065
  4. VORICONAZOLE. [Suspect]
     Active Substance: VORICONAZOLE
     Indication: BRONCHOPULMONARY ASPERGILLOSIS
     Route: 065
  5. CYTARABINE. [Suspect]
     Active Substance: CYTARABINE
     Indication: ACUTE LYMPHOCYTIC LEUKAEMIA
     Dosage: THE MAN RECEIVED A 3 + 7 PROTOCOL OF IDARUBICIN AND CYTARABINE
     Route: 065

REACTIONS (3)
  - Neutropenia [Not Recovered/Not Resolved]
  - Oral fungal infection [Recovered/Resolved]
  - Mucormycosis [Recovered/Resolved]
